FAERS Safety Report 20357940 (Version 2)
Quarter: 2022Q1

REPORT INFORMATION
  Report Type: Spontaneous
  Country: BE (occurrence: BE)
  Receive Date: 20220120
  Receipt Date: 20220218
  Transmission Date: 20220423
  Serious: Yes (Hospitalization)
  Sender: FDA-Public Use
  Company Number: BE-TEVA-2022-BE-1999059

PATIENT
  Age: 56 Year
  Sex: Male

DRUGS (20)
  1. MORPHINE [Suspect]
     Active Substance: MORPHINE
     Indication: Tumour pain
     Dosage: 520 MILLIGRAM DAILY;
     Route: 048
  2. MORPHINE [Suspect]
     Active Substance: MORPHINE
     Indication: Analgesic therapy
  3. MORPHINE [Suspect]
     Active Substance: MORPHINE
     Indication: Chest pain
  4. PREGABALIN [Suspect]
     Active Substance: PREGABALIN
     Indication: Tumour pain
     Route: 048
  5. PREGABALIN [Suspect]
     Active Substance: PREGABALIN
     Indication: Chest pain
  6. METAMIZOLE [Suspect]
     Active Substance: METAMIZOLE
     Indication: Tumour pain
     Dosage: 3 GRAM DAILY;
     Route: 048
  7. METAMIZOLE [Suspect]
     Active Substance: METAMIZOLE
     Indication: Chest pain
  8. KETAMINE [Suspect]
     Active Substance: KETAMINE
     Indication: Tumour pain
     Route: 048
  9. KETAMINE [Suspect]
     Active Substance: KETAMINE
     Indication: Chest pain
  10. AMITRIPTYLINE [Suspect]
     Active Substance: AMITRIPTYLINE
     Indication: Tumour pain
     Route: 065
  11. AMITRIPTYLINE [Suspect]
     Active Substance: AMITRIPTYLINE
     Indication: Chest pain
  12. METHYLPREDNISOLONE [Suspect]
     Active Substance: METHYLPREDNISOLONE
     Indication: Tumour pain
     Route: 065
  13. METHYLPREDNISOLONE [Suspect]
     Active Substance: METHYLPREDNISOLONE
     Indication: Chest pain
  14. MORPHINE [Suspect]
     Active Substance: MORPHINE
     Indication: Tumour pain
     Dosage: 0.2 MG/ML VIA INTRACEREBROVENTRICULAR (ICV) CATHETER
     Route: 050
  15. MORPHINE [Suspect]
     Active Substance: MORPHINE
     Indication: Chest pain
  16. MORPHINE [Suspect]
     Active Substance: MORPHINE
     Indication: Analgesic therapy
  17. REMIFENTANIL [Concomitant]
     Active Substance: REMIFENTANIL
     Indication: Anaesthesia
     Route: 041
  18. PROPOFOL [Concomitant]
     Active Substance: PROPOFOL
     Indication: Anaesthesia
     Route: 041
  19. BUPIVACAINE [Concomitant]
     Active Substance: BUPIVACAINE
     Indication: Analgesic therapy
     Dosage: 0.5 MG/ML
     Route: 050
  20. CLONIDINE [Concomitant]
     Active Substance: CLONIDINE
     Indication: Analgesic therapy
     Dosage: 3 UG/ML
     Route: 050

REACTIONS (5)
  - Sedation [Unknown]
  - Vomiting [Recovered/Resolved]
  - Loss of consciousness [Recovered/Resolved]
  - Bradypnoea [Unknown]
  - Overdose [Unknown]
